FAERS Safety Report 19157316 (Version 1)
Quarter: 2021Q2

REPORT INFORMATION
  Report Type: Spontaneous
  Country: US (occurrence: US)
  Receive Date: 20210419
  Receipt Date: 20210419
  Transmission Date: 20210717
  Serious: No
  Sender: FDA-Public Use
  Company Number: None

PATIENT
  Age: 66 Year
  Sex: Female
  Weight: 57.6 kg

DRUGS (4)
  1. TYMLOS [Suspect]
     Active Substance: ABALOPARATIDE
     Indication: OSTEOPOROSIS
     Dosage: ?          QUANTITY:1 INJECTION(S);?
     Route: 058
  2. SIMVASTATIN. [Concomitant]
     Active Substance: SIMVASTATIN
  3. VITAMIN D [Concomitant]
     Active Substance: VITAMIN D NOS
  4. CALCIUM [Concomitant]
     Active Substance: CALCIUM

REACTIONS (8)
  - Back pain [None]
  - Renal pain [None]
  - Injection site erythema [None]
  - Asthenia [None]
  - Vomiting [None]
  - Headache [None]
  - Gait disturbance [None]
  - Nausea [None]

NARRATIVE: CASE EVENT DATE: 20210416
